FAERS Safety Report 7385337-9 (Version None)
Quarter: 2011Q1

REPORT INFORMATION
  Report Type: 
  Country: None (occurrence: None)
  Receive Date: 20110330
  Receipt Date: 20100823
  Transmission Date: 20110831
  Serious: No
  Sender: FDA-Public Use
  Company Number: US-MYLANLABS-2010S1015662

PATIENT
  Sex: Male

DRUGS (11)
  1. PLAVIX [Concomitant]
  2. FOLIC ACID [Concomitant]
  3. EMSAM [Suspect]
     Indication: DEPRESSION
     Dosage: Q24H
     Route: 062
     Dates: start: 20091001, end: 20100601
  4. AVODART [Concomitant]
  5. FUROSEMIDE [Concomitant]
  6. EMSAM [Suspect]
     Dosage: Q24H
     Route: 062
     Dates: start: 20100601
  7. TAMSULOSIN HCL [Concomitant]
  8. RAMIPRIL [Concomitant]
  9. ASPIRIN [Concomitant]
  10. VYTORIN [Concomitant]
  11. MULTIVITAMIN [Concomitant]

REACTIONS (1)
  - APPLICATION SITE IRRITATION [None]
